FAERS Safety Report 6305633-3 (Version None)
Quarter: 2009Q3

REPORT INFORMATION
  Report Type: 
  Country: None (occurrence: None)
  Receive Date: 20090806
  Receipt Date: 20090727
  Transmission Date: 20100115
  Serious: Yes (Life-Threatening)
  Sender: FDA-Public Use
  Company Number: GXKR2009CZ08503

PATIENT
  Age: 19 Year
  Sex: Female

DRUGS (5)
  1. DIAZEPAM [Suspect]
     Indication: GENERAL ANAESTHESIA
  2. FENTANYL-100 [Suspect]
     Indication: GENERAL ANAESTHESIA
  3. THIOPENTAL SODIUM [Suspect]
     Indication: GENERAL ANAESTHESIA
  4. ATRACURIUM BESYLATE [Suspect]
     Indication: GENERAL ANAESTHESIA
  5. HEPARIN [Suspect]

REACTIONS (4)
  - ACUTE CORONARY SYNDROME [None]
  - ANAPHYLACTIC REACTION [None]
  - HYPOTENSION [None]
  - TACHYCARDIA [None]
